FAERS Safety Report 7447127-8 (Version None)
Quarter: 2011Q2

REPORT INFORMATION
  Report Type: 
  Country: None (occurrence: None)
  Receive Date: 20110429
  Receipt Date: 20110418
  Transmission Date: 20111010
  Serious: Yes (Hospitalization)
  Sender: FDA-Public Use
  Company Number: JP-ELI_LILLY_AND_COMPANY-JP201102006933

PATIENT
  Age: 65 Year
  Sex: Male

DRUGS (3)
  1. FORTEO [Suspect]
     Dosage: UNK
     Route: 058
     Dates: end: 20110201
  2. FORTEO [Suspect]
     Dosage: UNK, QD
     Route: 058
  3. ANALGESICS [Concomitant]
     Indication: PAIN
     Dosage: UNK, WEEKLY (1/W)
     Route: 048

REACTIONS (4)
  - DIABETES MELLITUS [None]
  - WEIGHT DECREASED [None]
  - ABDOMINAL DISTENSION [None]
  - OEDEMA PERIPHERAL [None]
